FAERS Safety Report 6376612-5 (Version None)
Quarter: 2009Q3

REPORT INFORMATION
  Report Type: 
  Country: None (occurrence: None)
  Receive Date: 20090925
  Receipt Date: 20090914
  Transmission Date: 20100115
  Serious: Yes (Hospitalization)
  Sender: FDA-Public Use
  Company Number: GB-ROCHE-645366

PATIENT
  Age: 45 Year
  Sex: Male

DRUGS (8)
  1. MYCOPHENOLATE MOFETIL [Suspect]
     Dosage: ROUTE INTRAVENOUS
     Route: 050
  2. MYCOPHENOLATE MOFETIL [Suspect]
     Dosage: ROUTE: ORAL
     Route: 050
  3. TACROLIMUS [Suspect]
     Route: 048
  4. PREDNISOLONE [Suspect]
     Route: 048
  5. BASILIXIMAB [Suspect]
     Route: 065
  6. METHYLPREDNISOLONE 4MG TAB [Suspect]
     Route: 065
  7. HYDROCORTISONE [Suspect]
     Route: 065
  8. CYCLOSPORINE [Suspect]
     Route: 065

REACTIONS (2)
  - GENITOURINARY TRACT INFECTION [None]
  - PANCREATIC FISTULA [None]
